FAERS Safety Report 5034375-X (Version None)
Quarter: 2006Q2

REPORT INFORMATION
  Report Type: 
  Country: None (occurrence: None)
  Receive Date: 20060626
  Receipt Date: 20060517
  Transmission Date: 20061013
  Serious: Yes (Life-Threatening, Hospitalization)
  Sender: FDA-Public Use
  Company Number: PHEH2006US06451

PATIENT
  Sex: Male

DRUGS (1)
  1. ZELNORM [Suspect]
     Dosage: UNK, UNK
     Dates: end: 20060501

REACTIONS (6)
  - COMA [None]
  - CONVULSION [None]
  - DEPENDENCE ON RESPIRATOR [None]
  - ENCEPHALOPATHY [None]
  - NAUSEA [None]
  - VOMITING [None]
